FAERS Safety Report 4947486-1 (Version None)
Quarter: 2006Q1

REPORT INFORMATION
  Report Type: 
  Country: None (occurrence: None)
  Receive Date: 20060313
  Receipt Date: 20060228
  Transmission Date: 20060701
  Serious: Yes (Other)
  Sender: FDA-Public Use
  Company Number: 2006029968

PATIENT
  Sex: Male
  Weight: 108.8633 kg

DRUGS (4)
  1. VIAGRA [Suspect]
     Indication: ERECTILE DYSFUNCTION
     Dosage: (AS NECESSARY), ORAL
     Route: 048
  2. LIPITOR [Concomitant]
  3. ALTACE [Concomitant]
  4. ALL OTHER THERAPEUTIC PRODUCTS (ALL OTHER THERAPEUTIC PRODUCTS) [Concomitant]

REACTIONS (4)
  - DRUG INEFFECTIVE [None]
  - LEG AMPUTATION [None]
  - OSTEOMYELITIS [None]
  - PERIPHERAL ARTERIAL OCCLUSIVE DISEASE [None]
